FAERS Safety Report 8291736-3 (Version None)
Quarter: 2012Q2

REPORT INFORMATION
  Report Type: 
  Country: None (occurrence: None)
  Receive Date: 20120417
  Receipt Date: 20110525
  Transmission Date: 20120825
  Serious: No
  Sender: FDA-Public Use
  Company Number: US-ASTRAZENECA-2011SE23578

PATIENT
  Age: 43 Year
  Sex: Male
  Weight: 124.7 kg

DRUGS (3)
  1. NEXIUM [Suspect]
     Indication: GASTROOESOPHAGEAL REFLUX DISEASE
     Route: 048
     Dates: start: 20040101, end: 20060101
  2. NARCO [Concomitant]
     Indication: PAIN
  3. NEXIUM [Suspect]
     Route: 048
     Dates: start: 20060101

REACTIONS (2)
  - THROAT IRRITATION [None]
  - DRUG EFFECT DECREASED [None]
